FAERS Safety Report 18181625 (Version 1)
Quarter: 2020Q3

REPORT INFORMATION
  Report Type: Spontaneous
  Country: ES (occurrence: ES)
  Receive Date: 20200821
  Receipt Date: 20200821
  Transmission Date: 20201103
  Serious: Yes (Other)
  Sender: FDA-Public Use
  Company Number: ES-CADILA HEALTHCARE LIMITED-ES-ZYDUS-028129

PATIENT

DRUGS (2)
  1. VERAPAMIL HYDROCHLORIDE. [Suspect]
     Active Substance: VERAPAMIL HYDROCHLORIDE
     Indication: HYPERTENSION
     Dosage: 240 MILLIGRAM,(INTERVAL :1 DAYS)
     Route: 048
     Dates: start: 20180522
  2. AMLODIPINE [Suspect]
     Active Substance: AMLODIPINE BESYLATE
     Indication: HYPERTENSION
     Dosage: 1 DOSAGE FORM,A COMPRESSED MORNING,(INTERVAL :24 HOURS)
     Route: 048
     Dates: start: 20120703

REACTIONS (2)
  - Tooth loss [Recovered/Resolved with Sequelae]
  - Gingival hypertrophy [Recovered/Resolved with Sequelae]

NARRATIVE: CASE EVENT DATE: 2017
